FAERS Safety Report 7821718-4 (Version None)
Quarter: 2011Q4

REPORT INFORMATION
  Report Type: 
  Country: None (occurrence: None)
  Receive Date: 20111018
  Receipt Date: 20110225
  Transmission Date: 20120403
  Serious: No
  Sender: FDA-Public Use
  Company Number: US-ASTRAZENECA-2010SE48606

PATIENT
  Age: 64 Year
  Sex: Female

DRUGS (4)
  1. SYMBICORT [Suspect]
     Dosage: 80/ 4.5 MCG 2 PUFFS TWO TIMES A DAY
     Route: 055
  2. PRILOSEC [Suspect]
     Route: 048
  3. LORTAB [Concomitant]
  4. SYMBICORT [Suspect]
     Indication: CHRONIC OBSTRUCTIVE PULMONARY DISEASE
     Dosage: 80/ 4.5 MCG TWO TIMES A DAY
     Route: 055
     Dates: start: 20100901

REACTIONS (6)
  - DYSPHONIA [None]
  - EYE DISORDER [None]
  - OROPHARYNGEAL PAIN [None]
  - DRUG INEFFECTIVE [None]
  - INAPPROPRIATE SCHEDULE OF DRUG ADMINISTRATION [None]
  - HEART RATE INCREASED [None]
